FAERS Safety Report 5265961-X (Version None)
Quarter: 2007Q1

REPORT INFORMATION
  Report Type: 
  Country: None (occurrence: None)
  Receive Date: 20070315
  Receipt Date: 20070302
  Transmission Date: 20070707
  Serious: Yes (Other)
  Sender: FDA-Public Use
  Company Number: PHEH2007US02611

PATIENT
  Age: 57 Year
  Sex: Female

DRUGS (1)
  1. MIACALCIN [Suspect]
     Indication: OSTEOPENIA
     Dosage: 200 IU, QD
     Dates: start: 20060128, end: 20070214

REACTIONS (2)
  - BENIGN RENAL NEOPLASM [None]
  - SURGERY [None]
